FAERS Safety Report 8532841-3 (Version None)
Quarter: 2012Q3

REPORT INFORMATION
  Report Type: 
  Country: None (occurrence: None)
  Receive Date: 20120712
  Receipt Date: 20120626
  Transmission Date: 20120928
  Serious: Yes (Life-Threatening, Hospitalization)
  Sender: FDA-Public Use
  Company Number: ALLO20120012

PATIENT
  Age: 89 Year
  Sex: Female

DRUGS (1)
  1. ALLOPURINOL [Suspect]
     Indication: PRODUCT USED FOR UNKNOWN INDICATION

REACTIONS (3)
  - AUTOIMMUNE THROMBOCYTOPENIA [None]
  - MOUTH ULCERATION [None]
  - ODYNOPHAGIA [None]
